FAERS Safety Report 7275320-6 (Version None)
Quarter: 2011Q1

REPORT INFORMATION
  Report Type: 
  Country: None (occurrence: None)
  Receive Date: 20110204
  Receipt Date: 20110126
  Transmission Date: 20110831
  Serious: Yes (Death)
  Sender: FDA-Public Use
  Company Number: JP-ROCHE-756140

PATIENT
  Age: 53 Year
  Sex: Female

DRUGS (6)
  1. CYCLOSPORINE [Concomitant]
     Dosage: FORM:PERORAL AGENT.
  2. TACROLIMUS [Concomitant]
  3. TACROLIMUS [Concomitant]
     Dosage: FORM: PERORAL AGENT
  4. CYCLOSPORINE [Concomitant]
     Route: 041
  5. CELLCEPT [Suspect]
     Indication: PROPHYLAXIS AGAINST TRANSPLANT REJECTION
     Route: 048
  6. BASILIXIMAB [Concomitant]
     Dosage: DOSAGE IS UNCERTAIN.
     Route: 041

REACTIONS (1)
  - HEPATIC CIRRHOSIS [None]
